FAERS Safety Report 7068885-0 (Version None)
Quarter: 2010Q4

REPORT INFORMATION
  Report Type: 
  Country: None (occurrence: None)
  Receive Date: 20101028
  Receipt Date: 20100513
  Transmission Date: 20110411
  Serious: No
  Sender: FDA-Public Use
  Company Number: US-KINGPHARMUSA00001-K201000589

PATIENT
  Age: 82 Year
  Sex: Male
  Weight: 96 kg

DRUGS (9)
  1. SYNERCID [Suspect]
     Indication: ENTEROCOCCAL INFECTION
     Dosage: 720 MG, Q 12 HOURS
     Route: 042
     Dates: start: 20100508
  2. CARDIZEM [Concomitant]
  3. CIPROFLOXACIN [Concomitant]
     Dosage: UNK
     Dates: start: 20100501
  4. DIGOXIN [Concomitant]
  5. LANTUS [Concomitant]
     Dosage: UNK
     Dates: start: 20100512
  6. PREDNISONE [Concomitant]
     Dosage: UNK
     Dates: start: 20100511
  7. PRIMAXIN [Concomitant]
     Dosage: UNK
     Dates: start: 20100506
  8. PROTONIX [Concomitant]
     Dosage: UNK
     Dates: start: 20100503
  9. VFEND [Concomitant]
     Dosage: UNK
     Dates: start: 20100508

REACTIONS (1)
  - BLOOD BILIRUBIN INCREASED [None]
